FAERS Safety Report 8112722-X (Version None)
Quarter: 2012Q1

REPORT INFORMATION
  Report Type: 
  Country: None (occurrence: None)
  Receive Date: 20120203
  Receipt Date: 20120124
  Transmission Date: 20120608
  Serious: Yes (Death, Hospitalization)
  Sender: FDA-Public Use
  Company Number: US-SANOFI-AVENTIS-200817197US

PATIENT
  Age: 85 Year
  Sex: Male

DRUGS (7)
  1. FUROSEMIDE [Interacting]
     Dosage: DOSE AS USED: UNK
     Route: 065
  2. AZITHROMYCIN [Suspect]
     Dosage: DOSE AS USED: UNK
     Route: 065
  3. POLYMYCIN B SULFATE [Interacting]
     Dosage: DOSE:1.4 MILLION UNITS
     Route: 042
  4. COTRIM [Suspect]
     Dosage: DOSE AS USED: UNK
     Route: 065
  5. HYDROCHLOROTHIAZIDE [Suspect]
     Dosage: DOSE AS USED: UNK
     Route: 065
  6. VANCOMYCIN [Suspect]
     Dosage: DOSE AS USED: UNK
     Route: 042
  7. LOSARTAN POTASSIUM [Suspect]
     Dosage: DOSE AS USED: UNK
     Route: 065

REACTIONS (5)
  - BLOOD CREATININE INCREASED [None]
  - RENAL FAILURE [None]
  - DRUG INTERACTION [None]
  - CREATININE RENAL CLEARANCE DECREASED [None]
  - NEPHROPATHY TOXIC [None]
